FAERS Safety Report 6229354-0 (Version None)
Quarter: 2009Q2

REPORT INFORMATION
  Report Type: 
  Country: None (occurrence: None)
  Receive Date: 20090615
  Receipt Date: 20090115
  Transmission Date: 20091009
  Serious: No
  Sender: FDA-Public Use
  Company Number: US-BRISTOL-MYERS SQUIBB COMPANY-14473581

PATIENT
  Age: 56 Year
  Sex: Female
  Weight: 82 kg

DRUGS (10)
  1. MONOPRIL TABS 40 MG [Suspect]
     Indication: HYPERTENSION
  2. SYNTHROID [Concomitant]
  3. DICYCLOMINE [Concomitant]
  4. ALLEGRA [Concomitant]
  5. PRAVACHOL [Concomitant]
  6. CITRACAL [Concomitant]
  7. CHONDROITIN SULFATE + GLUCOSAMINE [Concomitant]
  8. VITAMIN B-50 [Concomitant]
  9. VITAMIN B6 [Concomitant]
  10. ECHINACEA [Concomitant]

REACTIONS (1)
  - DYSGEUSIA [None]
